FAERS Safety Report 25072123 (Version 1)
Quarter: 2025Q1

REPORT INFORMATION
  Report Type: Spontaneous
  Country: TR (occurrence: TR)
  Receive Date: 20250313
  Receipt Date: 20250313
  Transmission Date: 20250408
  Serious: Yes (Hospitalization, Other)
  Sender: Steriscience PTE
  Company Number: TR-STERISCIENCE B.V.-2025-ST-000456

PATIENT
  Age: 64 Year
  Sex: Male

DRUGS (1)
  1. BUPIVACAINE [Suspect]
     Active Substance: BUPIVACAINE
     Indication: Local anaesthesia

REACTIONS (1)
  - Kounis syndrome [None]
